FAERS Safety Report 21254579 (Version 1)
Quarter: 2022Q3

REPORT INFORMATION
  Report Type: Spontaneous
  Country: US (occurrence: None)
  Receive Date: 20220824
  Receipt Date: 20220824
  Transmission Date: 20221027
  Serious: No
  Sender: FDA-Public Use
  Company Number: None

PATIENT
  Sex: Female

DRUGS (1)
  1. DUPIXENT [Suspect]
     Active Substance: DUPILUMAB
     Dosage: OTHER QUANTITY : 600/300MG;?OTHER FREQUENCY : 2 DAY 1/1 DAY 15;?
     Route: 058
     Dates: start: 202208

REACTIONS (2)
  - Syringe issue [None]
  - Incorrect dose administered [None]
